FAERS Safety Report 20619410 (Version 5)
Quarter: 2022Q4

REPORT INFORMATION
  Report Type: Report from Study
  Country: CA (occurrence: CA)
  Receive Date: 20220322
  Receipt Date: 20221220
  Transmission Date: 20230113
  Serious: Yes (Other)
  Sender: FDA-Public Use
  Company Number: CA-JNJFOC-20220336585

PATIENT
  Age: 71 Year
  Sex: Female
  Weight: 74.002 kg

DRUGS (1)
  1. REMICADE [Suspect]
     Active Substance: INFLIXIMAB
     Indication: Rheumatoid arthritis
     Route: 042

REACTIONS (6)
  - Rectal prolapse [Recovering/Resolving]
  - Haemorrhage [Unknown]
  - Abdominal pain [Recovered/Resolved]
  - Pallor [Unknown]
  - Poor venous access [Unknown]
  - Haemoglobin decreased [Unknown]

NARRATIVE: CASE EVENT DATE: 20221214
